FAERS Safety Report 25611226 (Version 1)
Quarter: 2025Q3

REPORT INFORMATION
  Report Type: Spontaneous
  Country: US (occurrence: US)
  Receive Date: 20250728
  Receipt Date: 20250728
  Transmission Date: 20251021
  Serious: No
  Sender: SAREPTA THERAPEUTICS
  Company Number: US-SAREPTA THERAPEUTICS INC.-SRP2025-006233

PATIENT
  Age: 13 Year
  Sex: Male
  Weight: 48.073 kg

DRUGS (5)
  1. AMONDYS 45 [Suspect]
     Active Substance: CASIMERSEN
     Indication: Duchenne muscular dystrophy
     Route: 042
     Dates: start: 20211207, end: 20250703
  2. CYPROHEPTADINE HYDROCHLORIDE [Concomitant]
     Active Substance: CYPROHEPTADINE HYDROCHLORIDE
     Indication: Product used for unknown indication
     Dosage: 4 MILLIGRAM, HS
     Route: 048
     Dates: start: 20250618
  3. LISINOPRIL [Concomitant]
     Active Substance: LISINOPRIL
     Indication: Product used for unknown indication
     Dosage: 10 MILLIGRAM, QD
     Route: 048
     Dates: start: 20240919
  4. PREDNISONE [Concomitant]
     Active Substance: PREDNISONE
     Indication: Product used for unknown indication
     Dosage: QD
     Route: 048
     Dates: start: 20221130
  5. PREDNISOLONE [Concomitant]
     Active Substance: PREDNISOLONE
     Indication: Product used for unknown indication
     Dosage: 10 MILLILITER, QD
     Route: 048
     Dates: start: 20211129

REACTIONS (1)
  - Intentional dose omission [Unknown]

NARRATIVE: CASE EVENT DATE: 20250701
